FAERS Safety Report 16163066 (Version 2)
Quarter: 2019Q2

REPORT INFORMATION
  Report Type: Spontaneous
  Country: US (occurrence: US)
  Receive Date: 20190405
  Receipt Date: 20190417
  Transmission Date: 20190711
  Serious: Yes (Hospitalization)
  Sender: FDA-Public Use
  Company Number: US-ROCHE-2251589

PATIENT
  Age: 77 Year
  Sex: Female

DRUGS (13)
  1. BENZONATATE. [Concomitant]
     Active Substance: BENZONATATE
  2. PRADAXA [Concomitant]
     Active Substance: DABIGATRAN ETEXILATE MESYLATE
  3. OSELTAMIVIR [Concomitant]
     Active Substance: OSELTAMIVIR
  4. ESBRIET [Suspect]
     Active Substance: PIRFENIDONE
     Indication: IDIOPATHIC PULMONARY FIBROSIS
     Route: 048
     Dates: start: 20180301
  5. ESBRIET [Suspect]
     Active Substance: PIRFENIDONE
     Indication: INTERSTITIAL LUNG DISEASE
     Dosage: ONGOING: UNKNOWN
     Route: 048
     Dates: start: 20160916
  6. IPRATROPIUM [Concomitant]
     Active Substance: IPRATROPIUM
  7. DILT-XR [Concomitant]
     Active Substance: DILTIAZEM
  8. DOXEPIN HCL [Concomitant]
     Active Substance: DOXEPIN HYDROCHLORIDE
  9. PREDNISONE. [Concomitant]
     Active Substance: PREDNISONE
  10. OMEPRAZOLE. [Concomitant]
     Active Substance: OMEPRAZOLE
  11. KETOCONAZOLE. [Concomitant]
     Active Substance: KETOCONAZOLE
  12. FUROSEMIDE. [Concomitant]
     Active Substance: FUROSEMIDE
  13. QUINAPRIL. [Concomitant]
     Active Substance: QUINAPRIL

REACTIONS (5)
  - Vomiting [Unknown]
  - Diarrhoea [Unknown]
  - Influenza [Unknown]
  - Nausea [Unknown]
  - Pneumonia [Unknown]

NARRATIVE: CASE EVENT DATE: 201812
